FAERS Safety Report 9245198 (Version 1)
Quarter: 2013Q1

REPORT INFORMATION
  Report Type: Spontaneous
  Country: US (occurrence: None)
  Receive Date: 20121123
  Receipt Date: 20121123
  Transmission Date: 20140127
  Serious: No
  Sender: FDA-Public Use
  Company Number: 361045

PATIENT
  Age: 66 Year
  Sex: Male

DRUGS (3)
  1. VICTOZA [Suspect]
     Indication: TYPE 2 DIABETES MELLITUS
     Route: 058
     Dates: start: 201208
  2. METFORMIN (METFORMIN) [Suspect]
  3. GLIPIZIDE (GLIPIZIDE) [Suspect]
     Indication: TYPE 2 DIABETES MELLITUS

REACTIONS (6)
  - Abdominal discomfort [None]
  - Abdominal pain lower [None]
  - Blood glucose fluctuation [None]
  - Nausea [None]
  - Constipation [None]
  - Injection site pain [None]
